FAERS Safety Report 7477816-0 (Version None)
Quarter: 2011Q2

REPORT INFORMATION
  Report Type: 
  Country: None (occurrence: None)
  Receive Date: 20110513
  Receipt Date: 20110501
  Transmission Date: 20111010
  Serious: Yes (Hospitalization)
  Sender: FDA-Public Use
  Company Number: CA-ELI_LILLY_AND_COMPANY-CA201105000508

PATIENT
  Age: 72 Year
  Sex: Female

DRUGS (18)
  1. PANTOLOC                           /01263202/ [Concomitant]
  2. FORTEO [Suspect]
     Indication: OSTEOPOROSIS
     Dosage: 20 UG, QD
     Route: 058
     Dates: start: 20110209
  3. INSULIN [Concomitant]
  4. LYRICA [Concomitant]
  5. CRESTOR [Concomitant]
  6. NORVASC [Concomitant]
  7. LANTUS [Concomitant]
  8. SENOKOT [Concomitant]
  9. TYLENOL                                 /SCH/ [Concomitant]
     Dosage: UNK, PRN
  10. SYNTHROID [Concomitant]
  11. TRAZODONE HCL [Concomitant]
  12. VITAMIN D [Concomitant]
  13. COLACE [Concomitant]
  14. DILAUDID [Concomitant]
  15. CALCITONIN [Concomitant]
     Route: 045
  16. CALCIUM [Concomitant]
  17. ATACAND [Concomitant]
  18. FERROUS SULFATE TAB [Concomitant]

REACTIONS (2)
  - BACK PAIN [None]
  - SPINAL COMPRESSION FRACTURE [None]
